FAERS Safety Report 6998124-8 (Version None)
Quarter: 2010Q3

REPORT INFORMATION
  Report Type: 
  Country: None (occurrence: None)
  Receive Date: 20100920
  Receipt Date: 20070427
  Transmission Date: 20110219
  Serious: Yes (Hospitalization, Other)
  Sender: FDA-Public Use
  Company Number: US-ASTRAZENECA-2006UW21018

PATIENT
  Age: 51 Year
  Sex: Male
  Weight: 38.3 kg

DRUGS (12)
  1. SEROQUEL [Suspect]
     Indication: SCHIZOPHRENIA
     Route: 048
     Dates: start: 19990101
  2. SEROQUEL [Suspect]
     Indication: DEPRESSION
     Route: 048
     Dates: start: 19990101
  3. SEROQUEL [Suspect]
     Dosage: 200 TO 400 MG AT NIGHT
     Route: 048
     Dates: start: 20040306
  4. SEROQUEL [Suspect]
     Dosage: 200 TO 400 MG AT NIGHT
     Route: 048
     Dates: start: 20040306
  5. CAPTOPRIL [Concomitant]
     Route: 048
     Dates: start: 20030324
  6. LASIX [Concomitant]
     Route: 048
     Dates: start: 20030324
  7. PROZAC [Concomitant]
     Route: 048
     Dates: start: 20030324
  8. CLONIDINE [Concomitant]
     Route: 048
     Dates: start: 20030324
  9. AMARYL [Concomitant]
     Route: 048
     Dates: start: 20030324
  10. POTASSIUM [Concomitant]
     Route: 048
     Dates: start: 20030324
  11. WELLBUTRIN XL [Concomitant]
     Route: 048
     Dates: start: 20030324
  12. DOXEPIN HCL [Concomitant]
     Route: 048
     Dates: start: 20030324

REACTIONS (6)
  - BLOOD GLUCOSE INCREASED [None]
  - CEREBROVASCULAR ACCIDENT [None]
  - DIABETES MELLITUS [None]
  - DIABETES MELLITUS INADEQUATE CONTROL [None]
  - DIABETIC COMA [None]
  - HYPERGLYCAEMIA [None]
